FAERS Safety Report 14217471 (Version 1)
Quarter: 2017Q4

REPORT INFORMATION
  Report Type: Spontaneous
  Country: FR (occurrence: FR)
  Receive Date: 20171123
  Receipt Date: 20171123
  Transmission Date: 20180321
  Serious: Yes (Other)
  Sender: FDA-Public Use
  Company Number: FR-MERCK KGAA-2034946

PATIENT
  Age: 67 Year
  Sex: Female

DRUGS (4)
  1. BIOMAG [Concomitant]
  2. DEDROGYL [Concomitant]
     Active Substance: CALCIFEDIOL
  3. NOVOTHYROX [Suspect]
     Active Substance: LEVOTHYROXINE SODIUM
     Indication: POST PROCEDURAL HYPOTHYROIDISM
     Dates: start: 201707
  4. CRESTOR [Concomitant]
     Active Substance: ROSUVASTATIN CALCIUM

REACTIONS (11)
  - Anxiety [Not Recovered/Not Resolved]
  - Vertigo [None]
  - Abdominal discomfort [None]
  - Limb discomfort [None]
  - Balance disorder [None]
  - Vitreous detachment [None]
  - Gastrooesophageal reflux disease [None]
  - Muscle fatigue [None]
  - Confusional state [None]
  - Crying [None]
  - Muscle spasms [None]

NARRATIVE: CASE EVENT DATE: 2017
